FAERS Safety Report 14101126 (Version 1)
Quarter: 2017Q4

REPORT INFORMATION
  Report Type: Spontaneous
  Country: SE (occurrence: SE)
  Receive Date: 20171018
  Receipt Date: 20171018
  Transmission Date: 20180321
  Serious: Yes (Other)
  Sender: FDA-Public Use
  Company Number: SE-ASTRAZENECA-2017SF03607

PATIENT
  Age: 72 Year
  Sex: Male

DRUGS (4)
  1. FELODIPINE. [Concomitant]
     Active Substance: FELODIPINE
  2. BRILIQUE [Suspect]
     Active Substance: TICAGRELOR
     Indication: ANTICOAGULANT THERAPY
     Route: 048
     Dates: start: 20170228, end: 20170927
  3. TROMBYL [Suspect]
     Active Substance: ASPIRIN
     Indication: ANTICOAGULANT THERAPY
     Route: 065
     Dates: start: 20170228, end: 20170927
  4. TENORMIN [Concomitant]
     Active Substance: ATENOLOL

REACTIONS (1)
  - Pemphigoid [Not Recovered/Not Resolved]

NARRATIVE: CASE EVENT DATE: 20170922
